FAERS Safety Report 20577874 (Version 2)
Quarter: 2022Q1

REPORT INFORMATION
  Report Type: Spontaneous
  Country: US (occurrence: US)
  Receive Date: 20220310
  Receipt Date: 20220324
  Transmission Date: 20220423
  Serious: Yes (Other)
  Sender: FDA-Public Use
  Company Number: US-KALA PHARAMACEUTICALS-2022KLA00016

PATIENT
  Sex: Female

DRUGS (6)
  1. EYSUVIS [Suspect]
     Active Substance: LOTEPREDNOL ETABONATE
     Indication: Dry eye
     Dosage: UNK UNK, 2X/DAY
     Route: 047
     Dates: start: 20210305, end: 20220105
  2. EYSUVIS [Suspect]
     Active Substance: LOTEPREDNOL ETABONATE
     Indication: Eye discharge
  3. RESTASIS [Suspect]
     Active Substance: CYCLOSPORINE
     Dosage: UNK, 2X/DAY
     Dates: start: 20210305
  4. SYSTANE (HYPROMELLOSE 2910 (4000 MPA.S)) [Suspect]
     Active Substance: HYPROMELLOSE 2910 (4000 MPA.S)
  5. UNSPECIFIED INGREDIENT [Suspect]
     Active Substance: UNSPECIFIED INGREDIENT
     Indication: Infestation
  6. UNSPECIFIED INGREDIENT [Suspect]
     Active Substance: UNSPECIFIED INGREDIENT
     Indication: Hordeolum

REACTIONS (9)
  - Visual impairment [Not Recovered/Not Resolved]
  - Corneal defect [Not Recovered/Not Resolved]
  - Ulcerative keratitis [Not Recovered/Not Resolved]
  - Acarodermatitis [Unknown]
  - Infestation [Unknown]
  - Pruritus [Unknown]
  - Inappropriate schedule of product administration [Recovered/Resolved]
  - Arthropod bite [Unknown]
  - Retinal disorder [Unknown]
